FAERS Safety Report 5893973-1 (Version None)
Quarter: 2008Q3

REPORT INFORMATION
  Report Type: 
  Country: None (occurrence: None)
  Receive Date: 20080923
  Receipt Date: 20080916
  Transmission Date: 20090109
  Serious: Yes (Other)
  Sender: FDA-Public Use
  Company Number: US-B.I. PHARMACEUTICALS,INC./RIDGEFIELD-2008-BP-12732BP

PATIENT
  Age: 72 Year
  Sex: Female

DRUGS (10)
  1. AGGRENOX [Suspect]
     Indication: CEREBROVASCULAR ACCIDENT PROPHYLAXIS
     Route: 048
     Dates: start: 20080730, end: 20080730
  2. AGGRENOX [Suspect]
     Indication: TRANSIENT ISCHAEMIC ATTACK
  3. AGGRENOX [Suspect]
     Indication: ANTIPLATELET THERAPY
  4. LISINOPRIL [Concomitant]
  5. SIMVASTATIN [Concomitant]
  6. SYNTHROID [Concomitant]
  7. RANITIDINE [Concomitant]
  8. FOSINOPRIL SODIUM [Concomitant]
  9. PLAVIX [Concomitant]
  10. ASPIRIN [Concomitant]

REACTIONS (1)
  - HEADACHE [None]
